FAERS Safety Report 19479051 (Version 5)
Quarter: 2022Q1

REPORT INFORMATION
  Report Type: Report from Study
  Country: US (occurrence: US)
  Receive Date: 20210701
  Receipt Date: 20220325
  Transmission Date: 20220424
  Serious: No
  Sender: FDA-Public Use
  Company Number: US-ACADIA PHARMACEUTICALS INC.-ACA-2021-PIM-002118

PATIENT
  Age: 65 Year
  Sex: Male

DRUGS (2)
  1. NUPLAZID [Interacting]
     Active Substance: PIMAVANSERIN TARTRATE
     Indication: Parkinson^s disease
     Dosage: 34 MILLIGRAM, QD
     Route: 048
     Dates: start: 201912, end: 202202
  2. CEFIXIME [Interacting]
     Active Substance: CEFIXIME

REACTIONS (10)
  - Ill-defined disorder [Unknown]
  - Paraesthesia [Unknown]
  - Head injury [Unknown]
  - Drug interaction [Unknown]
  - Pain [Unknown]
  - Movement disorder [Unknown]
  - Delusion [Unknown]
  - Product dose omission issue [Unknown]
  - Fall [Unknown]
  - Fall [Unknown]

NARRATIVE: CASE EVENT DATE: 20210701
